FAERS Safety Report 6572806-4 (Version None)
Quarter: 2010Q1

REPORT INFORMATION
  Report Type: 
  Country: None (occurrence: None)
  Receive Date: 20100205
  Receipt Date: 20100127
  Transmission Date: 20100710
  Serious: Yes (Other)
  Sender: FDA-Public Use
  Company Number: AU-AMGEN-QUU358143

PATIENT
  Sex: Male
  Weight: 48 kg

DRUGS (5)
  1. ARANESP [Suspect]
     Indication: RENAL FAILURE CHRONIC
     Route: 058
     Dates: start: 20050515
  2. AZATHIOPRINE [Concomitant]
     Dates: start: 20090401
  3. SULFAMETHOXAZOLE [Concomitant]
     Dates: start: 20090302, end: 20090401
  4. SULFAMETHOXAZOLE AND TRIMETHOPRIM [Concomitant]
     Dates: start: 20090302, end: 20090401
  5. TACROLIMUS [Concomitant]
     Dates: start: 20090302

REACTIONS (3)
  - ANTI-ERYTHROPOIETIN ANTIBODY POSITIVE [None]
  - APLASIA PURE RED CELL [None]
  - NON-NEUTRALISING ANTIBODIES POSITIVE [None]
